FAERS Safety Report 6313059-1 (Version None)
Quarter: 2009Q3

REPORT INFORMATION
  Report Type: 
  Country: None (occurrence: None)
  Receive Date: 20090818
  Receipt Date: 20090813
  Transmission Date: 20100115
  Serious: Yes (Death, Hospitalization, Other)
  Sender: FDA-Public Use
  Company Number: PR-ROXANE LABORATORIES, INC.-2009-RO-00823RO

PATIENT
  Age: 32 Year
  Sex: Male

DRUGS (11)
  1. METHOTREXATE [Suspect]
     Indication: CHEMOTHERAPY
  2. MERCAPTOPURINE [Suspect]
     Indication: CHEMOTHERAPY
  3. DAUNORUBICIN HCL [Suspect]
     Indication: CHEMOTHERAPY
     Route: 042
  4. DAUNORUBICIN HCL [Suspect]
     Route: 042
  5. CYTARABINE [Suspect]
     Indication: CHEMOTHERAPY
     Route: 042
  6. CYTARABINE [Suspect]
  7. CYTARABINE [Suspect]
  8. ALL TRANS RETINOIC ACID [Suspect]
     Indication: CHEMOTHERAPY
     Route: 048
  9. ALL TRANS RETINOIC ACID [Suspect]
     Route: 048
  10. MITOXANTRONE [Suspect]
     Indication: CHEMOTHERAPY
  11. ANTIFUNGAL [Concomitant]
     Indication: ASPERGILLOSIS

REACTIONS (5)
  - ACUTE PROMYELOCYTIC LEUKAEMIA [None]
  - ASPERGILLOSIS [None]
  - LEUKAEMIA RECURRENT [None]
  - MYELOID LEUKAEMIA [None]
  - OSTEOMYELITIS [None]
